FAERS Safety Report 20439337 (Version 1)
Quarter: 2022Q1

REPORT INFORMATION
  Report Type: Spontaneous
  Country: US (occurrence: None)
  Receive Date: 20220205
  Receipt Date: 20220205
  Transmission Date: 20220424
  Serious: No
  Sender: FDA-Public Use
  Company Number: None

PATIENT
  Sex: Female

DRUGS (1)
  1. VERZENIO [Suspect]
     Active Substance: ABEMACICLIB
     Indication: Breast cancer female
     Dosage: 150MG  TWICE DAILY ORAL?
     Route: 048
     Dates: start: 202112

REACTIONS (3)
  - Blood potassium decreased [None]
  - Diarrhoea [None]
  - Therapy cessation [None]
